FAERS Safety Report 5118619-1 (Version None)
Quarter: 2006Q4

REPORT INFORMATION
  Report Type: 
  Country: None (occurrence: None)
  Receive Date: 20061002
  Receipt Date: 20060330
  Transmission Date: 20070319
  Serious: Yes (Other)
  Sender: FDA-Public Use
  Company Number: FR-GLAXOSMITHKLINE-B0418921A

PATIENT
  Age: 73 Year
  Sex: Female
  Weight: 94 kg

DRUGS (1)
  1. AVANDAMET [Suspect]
     Route: 048

REACTIONS (5)
  - CARDIAC FAILURE CONGESTIVE [None]
  - DYSPNOEA EXERTIONAL [None]
  - OEDEMA PERIPHERAL [None]
  - ORTHOPNOEA [None]
  - WEIGHT INCREASED [None]
